FAERS Safety Report 15900490 (Version 3)
Quarter: 2019Q2

REPORT INFORMATION
  Report Type: Spontaneous
  Country: US (occurrence: US)
  Receive Date: 20190201
  Receipt Date: 20190515
  Transmission Date: 20190711
  Serious: Yes (Hospitalization, Disabling, Other)
  Sender: FDA-Public Use
  Company Number: US-PFIZER INC-2019037349

PATIENT
  Age: 73 Year
  Sex: Female
  Weight: 81 kg

DRUGS (4)
  1. LYRICA [Suspect]
     Active Substance: PREGABALIN
     Indication: ARTHRALGIA
     Dosage: 50 MG, 2X/DAY
     Route: 048
     Dates: start: 2016
  2. VITAMIN D [COLECALCIFEROL] [Concomitant]
     Active Substance: CHOLECALCIFEROL
     Dosage: UNK
  3. LYRICA [Suspect]
     Active Substance: PREGABALIN
     Indication: NEUROPATHY PERIPHERAL
     Dosage: 50 MG, 1X/DAY
     Route: 048
  4. LYRICA [Suspect]
     Active Substance: PREGABALIN
     Indication: PAIN
     Dosage: 50 MG, 2X/DAY (IN THE MORNING AND EVENING)
     Route: 048

REACTIONS (18)
  - Insomnia [Unknown]
  - Pruritus [Unknown]
  - Malaise [Unknown]
  - Drug dependence [Unknown]
  - Body height decreased [Unknown]
  - Gastrointestinal haemorrhage [Unknown]
  - Formication [Unknown]
  - Pain in extremity [Not Recovered/Not Resolved]
  - Haemorrhage [Unknown]
  - Atrial fibrillation [Unknown]
  - Hallucination, visual [Unknown]
  - Scratch [Unknown]
  - Withdrawal syndrome [Unknown]
  - Intentional product use issue [Unknown]
  - Psychotic disorder [Unknown]
  - Fluid overload [Unknown]
  - Hypotension [Unknown]
  - Weight decreased [Unknown]

NARRATIVE: CASE EVENT DATE: 201701
